APPROVED DRUG PRODUCT: FELBAMATE
Active Ingredient: FELBAMATE
Strength: 400MG
Dosage Form/Route: TABLET;ORAL
Application: A202284 | Product #001 | TE Code: AB
Applicant: ANI PHARMACEUTICALS INC
Approved: Nov 4, 2015 | RLD: No | RS: No | Type: RX